FAERS Safety Report 16319621 (Version 1)
Quarter: 2019Q2

REPORT INFORMATION
  Report Type: Spontaneous
  Country: CA (occurrence: CA)
  Receive Date: 20190516
  Receipt Date: 20190516
  Transmission Date: 20190711
  Serious: Yes (Hospitalization, Other)
  Sender: FDA-Public Use
  Company Number: CA-PFIZER INC-2019202502

PATIENT
  Age: 21 Year
  Sex: Female
  Weight: 54.5 kg

DRUGS (5)
  1. MIRTAZAPINE. [Concomitant]
     Active Substance: MIRTAZAPINE
     Dosage: UNK
     Dates: start: 2019
  2. LORAZEPAM. [Concomitant]
     Active Substance: LORAZEPAM
     Dosage: UNK
  3. PREDNISONE. [Concomitant]
     Active Substance: PREDNISONE
     Dosage: 50 MG TAPER
     Dates: start: 201904
  4. ESCITALOPRAM [Concomitant]
     Active Substance: ESCITALOPRAM OXALATE
     Dosage: UNK
  5. SOLU-MEDROL [Suspect]
     Active Substance: METHYLPREDNISOLONE SODIUM SUCCINATE
     Dosage: UNK
     Route: 042

REACTIONS (12)
  - Anaemia [Unknown]
  - C-reactive protein increased [Unknown]
  - Depression [Unknown]
  - Pseudopolyp [Unknown]
  - Large intestinal ulcer [Unknown]
  - Clostridium difficile infection [Not Recovered/Not Resolved]
  - Crohn^s disease [Unknown]
  - Anxiety [Unknown]
  - Gastrointestinal wall thickening [Unknown]
  - Haematochezia [Unknown]
  - Anal fistula [Not Recovered/Not Resolved]
  - Hiatus hernia [Unknown]

NARRATIVE: CASE EVENT DATE: 20190329
